FAERS Safety Report 7717581-2 (Version None)
Quarter: 2011Q3

REPORT INFORMATION
  Report Type: 
  Country: None (occurrence: None)
  Receive Date: 20110830
  Receipt Date: 20110817
  Transmission Date: 20111222
  Serious: Yes (Other)
  Sender: FDA-Public Use
  Company Number: FR-UCBSA-039493

PATIENT
  Age: 75 Year
  Sex: Female

DRUGS (5)
  1. NEXIUM [Concomitant]
  2. FUNGIZONE [Concomitant]
  3. LOVENOX [Concomitant]
  4. KEPPRA [Suspect]
     Indication: CONVULSION PROPHYLAXIS
     Route: 048
  5. OXYGEN [Concomitant]

REACTIONS (1)
  - THROMBOCYTOPENIA [None]
